FAERS Safety Report 4382611-5 (Version None)
Quarter: 2004Q2

REPORT INFORMATION
  Report Type: 
  Country: None (occurrence: None)
  Receive Date: 20040617
  Receipt Date: 20040601
  Transmission Date: 20050107
  Serious: Yes (Hospitalization)
  Sender: FDA-Public Use
  Company Number: B0334675A

PATIENT
  Age: 48 Year
  Sex: Male

DRUGS (1)
  1. NICODERM CQ [Suspect]
     Indication: SMOKING CESSATION THERAPY
     Dosage: PER DAY, TRANSDERMAL
     Route: 062
     Dates: start: 20040513, end: 20040531

REACTIONS (1)
  - CHEST PAIN [None]
